FAERS Safety Report 5194155-1 (Version None)
Quarter: 2006Q4

REPORT INFORMATION
  Report Type: 
  Country: None (occurrence: None)
  Receive Date: 20061226
  Receipt Date: 20061221
  Transmission Date: 20070319
  Serious: Yes (Hospitalization, Other)
  Sender: FDA-Public Use
  Company Number: HQWYE732129NOV06

PATIENT
  Age: 52 Year
  Sex: Female
  Weight: 63.56 kg

DRUGS (5)
  1. EFFEXOR XR [Suspect]
     Indication: DEPRESSION
     Dosage: 450 MG 1X PER 1 DAY, ORAL
     Route: 048
     Dates: start: 20020101
  2. SEROQUEL [Suspect]
     Indication: SLEEP DISORDER
     Dosage: ORAL
     Route: 048
     Dates: start: 20030101, end: 20050101
  3. AMBIEN [Concomitant]
  4. DYAZIDE [Concomitant]
  5. NEURONTIN [Concomitant]

REACTIONS (4)
  - DISORIENTATION [None]
  - DRUG INTERACTION [None]
  - HEART RATE IRREGULAR [None]
  - SYNCOPE [None]
